FAERS Safety Report 4748600-3 (Version None)
Quarter: 2005Q3

REPORT INFORMATION
  Report Type: 
  Country: None (occurrence: None)
  Receive Date: 20050817
  Receipt Date: 20050805
  Transmission Date: 20060218
  Serious: Yes (Hospitalization, Other)
  Sender: FDA-Public Use
  Company Number: HQWYE344209JUN05

PATIENT
  Age: 76 Year
  Sex: Female
  Weight: 47.6 kg

DRUGS (4)
  1. MYLOTARG [Suspect]
     Indication: ACUTE MYELOID LEUKAEMIA
     Dosage: 13.4 NG 1X PER 1 DAY, INTRAVENOUS
     Route: 042
     Dates: start: 20050428, end: 20050428
  2. MYLOTARG [Suspect]
     Indication: ACUTE MYELOID LEUKAEMIA
     Dosage: 13.4 NG 1X PER 1 DAY, INTRAVENOUS
     Route: 042
     Dates: start: 20050513, end: 20050513
  3. ALLOPURINOL [Concomitant]
  4. HYDROXYUREA [Concomitant]

REACTIONS (11)
  - BLAST CELL COUNT INCREASED [None]
  - BLOOD CREATININE INCREASED [None]
  - BLOOD LACTATE DEHYDROGENASE INCREASED [None]
  - BLOOD URIC ACID INCREASED [None]
  - FEBRILE NEUTROPENIA [None]
  - HAEMOGLOBIN DECREASED [None]
  - HYPOXIA [None]
  - PLATELET COUNT DECREASED [None]
  - TUMOUR LYSIS SYNDROME [None]
  - WHITE BLOOD CELL COUNT DECREASED [None]
  - WHITE BLOOD CELL COUNT INCREASED [None]
